FAERS Safety Report 8090447-7 (Version None)
Quarter: 2012Q1

REPORT INFORMATION
  Report Type: 
  Country: None (occurrence: None)
  Receive Date: 20120129
  Receipt Date: 20111201
  Transmission Date: 20120608
  Serious: No
  Sender: FDA-Public Use
  Company Number: US-ABBOTT-11P-163-0879920-00

PATIENT
  Sex: Female
  Weight: 65.83 kg

DRUGS (6)
  1. HUMIRA [Suspect]
     Indication: RHEUMATOID ARTHRITIS
     Route: 058
     Dates: start: 20050101
  2. HUMIRA [Suspect]
     Indication: ANKYLOSING SPONDYLITIS
  3. METHOTREXATE [Concomitant]
     Indication: RHEUMATOID ARTHRITIS
  4. METHOTREXATE [Concomitant]
     Indication: ANKYLOSING SPONDYLITIS
  5. QUINAPRIL [Concomitant]
     Indication: HYPERTENSION
  6. SULINDAC [Concomitant]
     Indication: RHEUMATOID ARTHRITIS

REACTIONS (3)
  - RHEUMATOID ARTHRITIS [None]
  - INCORRECT DOSE ADMINISTERED [None]
  - JOINT SWELLING [None]
